FAERS Safety Report 4594769-3 (Version None)
Quarter: 2005Q1

REPORT INFORMATION
  Report Type: 
  Country: None (occurrence: None)
  Receive Date: 20050223
  Receipt Date: 20050211
  Transmission Date: 20050727
  Serious: Yes (Disabling, Other)
  Sender: FDA-Public Use
  Company Number: 163-20785-05020239

PATIENT
  Age: 59 Year
  Sex: Male

DRUGS (4)
  1. THALOMID [Suspect]
     Indication: MULTIPLE MYELOMA
     Dosage: 150 MG, QHS, ORAL
     Route: 048
     Dates: start: 20041101
  2. DECADRON [Suspect]
  3. WARFARIN SODIUM [Concomitant]
  4. OXYCONTIN [Concomitant]

REACTIONS (5)
  - BLINDNESS [None]
  - CAROTID ARTERY DISEASE [None]
  - CONSTIPATION [None]
  - LACRIMATION INCREASED [None]
  - VISION BLURRED [None]
